FAERS Safety Report 9253423 (Version 2)
Quarter: 2013Q3

REPORT INFORMATION
  Report Type: Spontaneous
  Country: US (occurrence: US)
  Receive Date: 20130425
  Receipt Date: 20130806
  Transmission Date: 20140515
  Serious: Yes (Hospitalization)
  Sender: FDA-Public Use
  Company Number: US-BIOGENIDEC-2013BI035108

PATIENT
  Age: 33 Year
  Sex: Female

DRUGS (10)
  1. TYSABRI [Suspect]
     Indication: MULTIPLE SCLEROSIS
     Route: 042
     Dates: start: 20110323
  2. NEURONTIN [Concomitant]
     Indication: NEURALGIA
     Route: 048
     Dates: start: 2010
  3. TRAZODONE [Concomitant]
     Indication: INSOMNIA
     Route: 048
     Dates: start: 2011
  4. XANAX [Concomitant]
     Indication: NERVOUSNESS
     Route: 048
     Dates: start: 2010
  5. VESICARE [Concomitant]
     Indication: MULTIPLE SCLEROSIS
     Route: 048
     Dates: start: 201008
  6. TRIBENZOR [Concomitant]
     Indication: BLOOD PRESSURE
     Route: 048
     Dates: start: 201012
  7. TIZANIDINE [Concomitant]
     Indication: MUSCLE SPASMS
     Route: 048
  8. TIZANIDINE [Concomitant]
     Indication: MUSCULOSKELETAL STIFFNESS
     Route: 048
  9. PERCOCET [Concomitant]
     Indication: PAIN
  10. PERCOCET [Concomitant]
     Indication: ARTHRALGIA

REACTIONS (4)
  - Mental disorder [Recovered/Resolved]
  - Suicidal ideation [Recovered/Resolved]
  - Depression [Recovered/Resolved]
  - Affective disorder [Recovered/Resolved]
